FAERS Safety Report 22620894 (Version 1)
Quarter: 2023Q2

REPORT INFORMATION
  Report Type: Report from Study
  Country: US (occurrence: US)
  Receive Date: 20230620
  Receipt Date: 20230620
  Transmission Date: 20230722
  Serious: Yes (Hospitalization, Other)
  Sender: FDA-Public Use
  Company Number: US-PFIZER INC-US-GBT-022067

PATIENT
  Age: 33 Year
  Sex: Female
  Weight: 97.506 kg

DRUGS (3)
  1. OXBRYTA [Suspect]
     Active Substance: VOXELOTOR
     Indication: Sickle cell disease
     Dosage: 1000 MG, 1X/DAY
     Route: 048
     Dates: start: 202301
  2. VITAMIN B12 [Suspect]
     Active Substance: CYANOCOBALAMIN
     Dosage: UNK
     Dates: start: 20220705
  3. VITAMIN B12 [Suspect]
     Active Substance: CYANOCOBALAMIN
     Dosage: 500 UG
     Dates: start: 20230421

REACTIONS (7)
  - Sickle cell anaemia with crisis [Unknown]
  - Constipation [Not Recovered/Not Resolved]
  - Tonsillectomy [Unknown]
  - Oral surgery [Unknown]
  - Colon operation [Unknown]
  - Diarrhoea [Unknown]
  - Bowel movement irregularity [Unknown]

NARRATIVE: CASE EVENT DATE: 20230425
